FAERS Safety Report 12999961 (Version 1)
Quarter: 2016Q4

REPORT INFORMATION
  Report Type: Spontaneous
  Country: DE (occurrence: DE)
  Receive Date: 20161205
  Receipt Date: 20161205
  Transmission Date: 20170207
  Serious: Yes (Hospitalization)
  Sender: FDA-Public Use
  Company Number: DE-ELI_LILLY_AND_COMPANY-DE201611008910

PATIENT
  Age: 39 Year
  Sex: Male

DRUGS (1)
  1. ZYPADHERA [Suspect]
     Active Substance: OLANZAPINE PAMOATE
     Indication: PRODUCT USED FOR UNKNOWN INDICATION
     Dosage: 405 MG, OTHER
     Route: 030
     Dates: start: 20140217

REACTIONS (11)
  - Anxiety [Recovered/Resolved]
  - Movement disorder [Recovered/Resolved]
  - Restlessness [Recovered/Resolved]
  - Blood pressure increased [Recovered/Resolved]
  - Sopor [Recovered/Resolved]
  - Delirium [Recovered/Resolved]
  - Ataxia [Recovered/Resolved]
  - Agitation [Recovered/Resolved]
  - Sinus tachycardia [Recovered/Resolved]
  - Muscle twitching [Recovered/Resolved]
  - Disorientation [Recovered/Resolved]

NARRATIVE: CASE EVENT DATE: 20160413
